FAERS Safety Report 13699408 (Version 1)
Quarter: 2017Q2

REPORT INFORMATION
  Report Type: Spontaneous
  Country: US (occurrence: US)
  Receive Date: 20170628
  Receipt Date: 20170628
  Transmission Date: 20170830
  Serious: Yes (Other)
  Sender: FDA-Public Use
  Company Number: PHHY2017US092147

PATIENT
  Sex: Male

DRUGS (7)
  1. METHOTREXATE. [Suspect]
     Active Substance: METHOTREXATE
     Indication: MUCOPOLYSACCHARIDOSIS II
     Dosage: UNK UNK, QMO
     Route: 065
  2. ELAPRASE [Suspect]
     Active Substance: IDURSULFASE
     Indication: MUCOPOLYSACCHARIDOSIS II
     Route: 065
  3. ELAPRASE [Suspect]
     Active Substance: IDURSULFASE
     Dosage: DOUBLE DOSE
     Route: 065
  4. DEXAMETHASONE. [Suspect]
     Active Substance: DEXAMETHASONE
     Indication: MUCOPOLYSACCHARIDOSIS II
     Route: 065
  5. BORTEZOMIB [Suspect]
     Active Substance: BORTEZOMIB
     Indication: MUCOPOLYSACCHARIDOSIS II
     Route: 065
  6. OFATUMUMAB [Suspect]
     Active Substance: OFATUMUMAB
     Indication: MUCOPOLYSACCHARIDOSIS II
     Route: 065
  7. IMMUNE GLOBULIN, INTRAVENOUS [Suspect]
     Active Substance: HUMAN IMMUNOGLOBULIN G
     Indication: MUCOPOLYSACCHARIDOSIS II
     Route: 042

REACTIONS (7)
  - Hypokalaemia [Unknown]
  - Oedema [Unknown]
  - Hypersensitivity [Unknown]
  - Rash [Unknown]
  - Irritability [Unknown]
  - Urticaria [Unknown]
  - Anaphylactic reaction [Unknown]
